FAERS Safety Report 8483146-0 (Version None)
Quarter: 2012Q3

REPORT INFORMATION
  Report Type: 
  Country: None (occurrence: None)
  Receive Date: 20120702
  Receipt Date: 20120620
  Transmission Date: 20120928
  Serious: Yes (Hospitalization)
  Sender: FDA-Public Use
  Company Number: ZA-ELI_LILLY_AND_COMPANY-ZA201206007761

PATIENT
  Sex: Female

DRUGS (7)
  1. CARLOC [Concomitant]
     Indication: BLOOD PRESSURE ABNORMAL
     Dosage: 25 MG, EACH MORNING
     Route: 048
  2. PRAVA [Concomitant]
     Indication: BLOOD CHOLESTEROL INCREASED
     Dosage: 40 MG, EACH MORNING
     Route: 048
  3. HUMALOG MIX 75/25 [Suspect]
     Dosage: 20 U, EACH EVENING
     Route: 058
     Dates: start: 20120411
  4. NIFEDIPINE [Concomitant]
     Indication: BLOOD PRESSURE INCREASED
     Dosage: 60 MG, EACH MORNING
     Route: 048
  5. ASPIRIN [Concomitant]
     Indication: ANTICOAGULANT THERAPY
     Dosage: 1 DF, EACH MORNING
     Route: 048
  6. HUMALOG MIX 75/25 [Suspect]
     Indication: DIABETES MELLITUS
     Dosage: 30 U, EACH MORNING
     Route: 058
     Dates: start: 20120411
  7. METFORMIN HCL [Concomitant]
     Indication: DIABETES MELLITUS
     Dosage: 850 MG, BID
     Route: 048

REACTIONS (2)
  - ANGIOGRAM [None]
  - ENDOSCOPY UPPER GASTROINTESTINAL TRACT [None]
